FAERS Safety Report 7815138-6 (Version None)
Quarter: 2011Q4

REPORT INFORMATION
  Report Type: 
  Country: None (occurrence: None)
  Receive Date: 20111014
  Receipt Date: 20111014
  Transmission Date: 20120403
  Serious: Yes (Other)
  Sender: FDA-Public Use
  Company Number: None

PATIENT
  Age: 28 Year
  Sex: Female
  Weight: 70.306 kg

DRUGS (1)
  1. YASMIN [Suspect]
     Indication: CONTRACEPTION
     Dosage: ONE/DAY
     Route: 048
     Dates: start: 20110320, end: 20110520

REACTIONS (3)
  - HEADACHE [None]
  - PAIN IN JAW [None]
  - SINUSITIS [None]
